FAERS Safety Report 17166997 (Version 2)
Quarter: 2020Q1

REPORT INFORMATION
  Report Type: Spontaneous
  Country: US (occurrence: US)
  Receive Date: 20191217
  Receipt Date: 20200128
  Transmission Date: 20200409
  Serious: No
  Sender: FDA-Public Use
  Company Number: US-ASTRAZENECA-2019SF67371

PATIENT
  Sex: Female
  Weight: 53.5 kg

DRUGS (1)
  1. BYDUREON BCISE [Suspect]
     Active Substance: EXENATIDE
     Indication: DIABETES MELLITUS
     Route: 065
     Dates: start: 2016

REACTIONS (4)
  - Device issue [Unknown]
  - Device malfunction [Unknown]
  - Nodule [Unknown]
  - Hypersensitivity [Unknown]
